FAERS Safety Report 8694283 (Version 4)
Quarter: 2012Q4

REPORT INFORMATION
  Report Type: 
  Country: US (occurrence: US)
  Receive Date: 20120731
  Receipt Date: 20120829
  Transmission Date: 20130627
  Serious: Yes (Hospitalization, Other)
  Sender: FDA-Public Use
  Company Number: US-PFIZER INC-2012179180

PATIENT
  Age: 39 Year
  Sex: Male
  Weight: 57 kg

DRUGS (12)
  1. DILANTIN [Suspect]
     Indication: CONVULSION PROPHYLAXIS
     Dosage: alternate 200/300 mg QD
     Route: 048
     Dates: start: 20120313, end: 20120723
  2. DILANTIN [Interacting]
     Indication: CONVULSION
  3. DIFLUCAN [Interacting]
     Indication: FUNGAL INFECTION
     Dosage: 200 mg, 1x/day
     Route: 048
     Dates: start: 20120719, end: 20120726
  4. DIFLUCAN [Interacting]
     Indication: FUNGAL INFECTION
  5. DOXYCYCLINE HYCLATE [Suspect]
     Indication: LYME DISEASE
     Dosage: UNK
     Route: 042
     Dates: start: 2012, end: 2012
  6. VANCOMYCIN [Concomitant]
     Indication: LYME DISEASE
     Dosage: 1 treatment each weekday
     Route: 042
     Dates: start: 20120716
  7. ROCEPHIN [Concomitant]
     Indication: LYME DISEASE
     Dosage: 1 treatment each weekday
     Route: 042
     Dates: start: 20120716
  8. SYNTHROID [Concomitant]
     Dosage: 0.088 ug, UNK
  9. CELEBREX [Concomitant]
     Dosage: 200 mg, 2x/day
  10. CELEXA [Concomitant]
     Dosage: 20 mg, 1x/day
  11. ZITHROMAX [Concomitant]
     Indication: LYME DISEASE
     Dosage: 250mg once a day on Mondays, Wednesdays and two tablets unknown frequency on Friday
     Route: 048
     Dates: start: 20111228
  12. AZITHROMYCIN [Concomitant]
     Indication: LYME DISEASE
     Dosage: Take TIW
     Dates: start: 20111228

REACTIONS (14)
  - Pancreatitis [Unknown]
  - Dizziness [Recovered/Resolved]
  - Coordination abnormal [Unknown]
  - Ataxia [Unknown]
  - Hyperhidrosis [Unknown]
  - Nausea [Recovered/Resolved]
  - Vomiting [Unknown]
  - Drug interaction [Unknown]
  - Drug level increased [Unknown]
  - Toxicity to various agents [Unknown]
  - Fungal infection [Recovering/Resolving]
  - Weight decreased [Recovered/Resolved]
  - Arthralgia [Unknown]
  - Chest pain [Recovered/Resolved]
